FAERS Safety Report 15879908 (Version 3)
Quarter: 2019Q3

REPORT INFORMATION
  Report Type: Report from Study
  Country: JP (occurrence: JP)
  Receive Date: 20190128
  Receipt Date: 20190717
  Transmission Date: 20191004
  Serious: Yes (Death)
  Sender: FDA-Public Use
  Company Number: JP-ACTELION-A-CH2019-185354

PATIENT
  Age: 53 Year
  Sex: Male
  Weight: 61 kg

DRUGS (3)
  1. SILDENAFIL CITRATE. [Concomitant]
     Active Substance: SILDENAFIL CITRATE
     Indication: PULMONARY TUMOUR THROMBOTIC MICROANGIOPATHY
     Dosage: 60 MG, QD
     Dates: start: 20181211, end: 20181217
  2. FUROSEMIDE. [Concomitant]
     Active Substance: FUROSEMIDE
     Dosage: 20 MG, QD
     Dates: start: 20181211, end: 20181217
  3. UPTRAVI [Suspect]
     Active Substance: SELEXIPAG
     Indication: PULMONARY TUMOUR THROMBOTIC MICROANGIOPATHY
     Dosage: 200 MCG, BID
     Route: 048
     Dates: start: 20181212, end: 20181217

REACTIONS (2)
  - Pulmonary tumour thrombotic microangiopathy [Fatal]
  - Condition aggravated [Fatal]

NARRATIVE: CASE EVENT DATE: 20181217
